FAERS Safety Report 17741237 (Version 1)
Quarter: 2020Q2

REPORT INFORMATION
  Report Type: Spontaneous
  Country: NL (occurrence: NL)
  Receive Date: 20200504
  Receipt Date: 20200504
  Transmission Date: 20200714
  Serious: Yes (Death, Hospitalization, Other)
  Sender: FDA-Public Use
  Company Number: NVSC2020NL117890

PATIENT
  Age: 57 Year
  Sex: Female

DRUGS (10)
  1. AZATHIOPRINE. [Suspect]
     Active Substance: AZATHIOPRINE
     Indication: SYSTEMIC LUPUS ERYTHEMATOSUS
     Dosage: 150 MG, QD
     Route: 065
  2. PREDNISONE. [Suspect]
     Active Substance: PREDNISONE
     Indication: IMMUNOSUPPRESSANT DRUG THERAPY
     Dosage: 10 MG, QD
     Route: 048
  3. DOXORUBICIN [Suspect]
     Active Substance: DOXORUBICIN
     Indication: ADULT T-CELL LYMPHOMA/LEUKAEMIA
     Dosage: UNK
     Route: 065
  4. INSULIN [Concomitant]
     Active Substance: INSULIN NOS
     Indication: TYPE 2 DIABETES MELLITUS
     Dosage: UNK
     Route: 065
  5. AZATHIOPRINE. [Suspect]
     Active Substance: AZATHIOPRINE
     Indication: IMMUNOSUPPRESSANT DRUG THERAPY
  6. PREDNISONE. [Suspect]
     Active Substance: PREDNISONE
     Indication: SYSTEMIC LUPUS ERYTHEMATOSUS
     Dosage: 60 MG, QD
     Route: 048
  7. PREDNISONE. [Suspect]
     Active Substance: PREDNISONE
     Indication: ADULT T-CELL LYMPHOMA/LEUKAEMIA
     Dosage: 10-20 MG, QD
     Route: 048
  8. METFORMIN [Concomitant]
     Active Substance: METFORMIN HYDROCHLORIDE
     Indication: TYPE 2 DIABETES MELLITUS
     Dosage: UNK
     Route: 065
  9. CYCLOPHOSPHAMIDE. [Suspect]
     Active Substance: CYCLOPHOSPHAMIDE
     Indication: ADULT T-CELL LYMPHOMA/LEUKAEMIA
     Dosage: ADJUSTED DOSES
     Route: 065
  10. BENZBROMARONE [Concomitant]
     Active Substance: BENZBROMARONE
     Indication: GOUT
     Dosage: UNK
     Route: 065

REACTIONS (25)
  - Adult T-cell lymphoma/leukaemia [Fatal]
  - Gastroenteritis norovirus [Unknown]
  - Depressed level of consciousness [Fatal]
  - Hypercalcaemia [Fatal]
  - Cardio-respiratory distress [Fatal]
  - Granulomatous lymphadenitis [Fatal]
  - Pyrexia [Fatal]
  - Lymph node haemorrhage [Fatal]
  - Tachycardia [Fatal]
  - Bone lesion [Fatal]
  - Tachypnoea [Fatal]
  - Pancytopenia [Fatal]
  - Lymphadenopathy [Fatal]
  - Back pain [Fatal]
  - Nausea [Unknown]
  - Diarrhoea [Unknown]
  - Hypocalcaemia [Fatal]
  - Human T-cell lymphotropic virus type I infection [Fatal]
  - Hyperkalaemia [Fatal]
  - Gait disturbance [Fatal]
  - Malaise [Fatal]
  - Tumour lysis syndrome [Fatal]
  - Multiple organ dysfunction syndrome [Fatal]
  - Hyperphosphataemia [Fatal]
  - Abdominal pain [Unknown]
